FAERS Safety Report 6640241-6 (Version None)
Quarter: 2010Q1

REPORT INFORMATION
  Report Type: 
  Country: None (occurrence: None)
  Receive Date: 20100301
  Receipt Date: 20100201
  Transmission Date: 20100710
  Serious: Yes (Hospitalization)
  Sender: FDA-Public Use
  Company Number: 222556USA

PATIENT
  Age: 57 Year
  Sex: Female

DRUGS (7)
  1. ALENDRONATE SODIUM [Suspect]
     Indication: OSTEOPOROSIS
     Dosage: 10 MG (70 MG, 1 IN 1 WK), ORAL
     Route: 048
     Dates: start: 20050101, end: 20100101
  2. FUROSEMIDE [Concomitant]
  3. POTASSIUM [Concomitant]
  4. SIMVASTATIN [Concomitant]
  5. CALCIUM [Concomitant]
  6. MEDROXYPROGESTERONE ACETATE [Concomitant]
  7. ACETYLSALICYLIC ACID [Concomitant]

REACTIONS (8)
  - CHEST INJURY [None]
  - CHEST PAIN [None]
  - DYSPEPSIA [None]
  - DYSPHAGIA [None]
  - GASTROENTERITIS [None]
  - MUSCLE STRAIN [None]
  - MYALGIA [None]
  - NAUSEA [None]
